FAERS Safety Report 4807563-2 (Version None)
Quarter: 2005Q4

REPORT INFORMATION
  Report Type: 
  Country: None (occurrence: None)
  Receive Date: 20051020
  Receipt Date: 20050610
  Transmission Date: 20060501
  Serious: Yes (Hospitalization)
  Sender: FDA-Public Use
  Company Number: 443

PATIENT
  Sex: Female

DRUGS (2)
  1. FLUOXETINE [Suspect]
     Indication: ANXIETY
     Dosage: 10 MG - PO; QD TO QOD
     Dates: start: 20041201
  2. FLUOXETINE [Suspect]
     Indication: DEPRESSION
     Dosage: 10 MG - PO; QD TO QOD
     Dates: start: 20041201

REACTIONS (1)
  - OVARIAN ENLARGEMENT [None]
